FAERS Safety Report 5221242-1 (Version None)
Quarter: 2007Q1

REPORT INFORMATION
  Report Type: 
  Country: None (occurrence: None)
  Receive Date: 20070126
  Receipt Date: 20070112
  Transmission Date: 20070707
  Serious: Yes (Hospitalization, Other)
  Sender: FDA-Public Use
  Company Number: JP-PFIZER INC-2006155939

PATIENT
  Age: 31 Year
  Sex: Female

DRUGS (2)
  1. CABASER [Suspect]
     Indication: HYPERPROLACTINAEMIA
     Dosage: DAILY DOSE:.25MG
     Route: 048
     Dates: start: 20061203, end: 20061217
  2. TAMOXIFEN CITRATE [Concomitant]

REACTIONS (2)
  - PLEURISY [None]
  - TUBERCULOSIS [None]
